FAERS Safety Report 4317560-1 (Version None)
Quarter: 2004Q1

REPORT INFORMATION
  Report Type: 
  Country: None (occurrence: None)
  Receive Date: 20040312
  Receipt Date: 20040303
  Transmission Date: 20041129
  Serious: Yes (Life-Threatening)
  Sender: FDA-Public Use
  Company Number: 235706

PATIENT

DRUGS (2)
  1. NOVORAPID PENFILL?ML (NOVORAPID PENFILL? 3 ML)(INSULIN ASPART) SOLUTIO [Suspect]
     Indication: DIABETES MELLITUS
     Dosage: INTRAUTERINE
     Route: 015
     Dates: start: 20030829, end: 20040229
  2. NOVOLIN GE TORONTO PENFIL (INSULIN HUMAN) SOLUTION FOR INJECTION [Concomitant]

REACTIONS (2)
  - HYPOGLYCAEMIA NEONATAL [None]
  - PREMATURE BABY [None]
